FAERS Safety Report 9371831 (Version 2)
Quarter: 2013Q3

REPORT INFORMATION
  Report Type: Spontaneous
  Country: FR (occurrence: None)
  Receive Date: 20130618
  Receipt Date: 20130904
  Transmission Date: 20140515
  Serious: Yes (Hospitalization)
  Sender: FDA-Public Use
  Company Number: 2013036495

PATIENT
  Age: 40 Year
  Sex: Male

DRUGS (3)
  1. PRIVIGEN [Suspect]
     Indication: TRANSPLANT REJECTION
     Dosage: 20 G QD, INTRAVENOUS (NOT OTHERWISE SPECIFIED)
     Route: 042
     Dates: start: 20130416
  2. CICLOSPORINE [Suspect]
     Dosage: 0.5 MG/KG/D - PLANNED ADMINISTRATION OVER 4 DAYS
     Dates: start: 20130413
  3. THYROGLOBULINE /0057540/ (ANTITHYMOCYTE IMMUNOGLOBULIN) [Concomitant]

REACTIONS (2)
  - Renal failure acute [None]
  - Anuria [None]
